FAERS Safety Report 8611416-1 (Version None)
Quarter: 2012Q3

REPORT INFORMATION
  Report Type: 
  Country: None (occurrence: None)
  Receive Date: 20120822
  Receipt Date: 20120815
  Transmission Date: 20120928
  Serious: Yes (Other)
  Sender: FDA-Public Use
  Company Number: US-TEVA-354622USA

PATIENT
  Sex: Female

DRUGS (2)
  1. YASMIN [Concomitant]
     Indication: CONTRACEPTION
     Dates: end: 20120815
  2. CLARAVIS [Suspect]
     Dosage: 20 MILLIGRAM DAILY;
     Route: 048
     Dates: start: 20120719, end: 20120815

REACTIONS (1)
  - UNINTENDED PREGNANCY [None]
